FAERS Safety Report 8682045 (Version 2)
Quarter: 2012Q4

REPORT INFORMATION
  Report Type: 
  Country: US (occurrence: US)
  Receive Date: 20120725
  Receipt Date: 20120904
  Transmission Date: 20130627
  Serious: Yes (Other)
  Sender: FDA-Public Use
  Company Number: US-FRI-1000037134

PATIENT
  Age: 51 Year
  Sex: Female

DRUGS (1)
  1. ARMOUR THYROID [Suspect]
     Indication: HYPOTHYROIDISM
     Dates: end: 2005

REACTIONS (2)
  - Blood thyroid stimulating hormone increased [Recovered/Resolved]
  - Memory impairment [Recovered/Resolved]
